FAERS Safety Report 8050382-7 (Version None)
Quarter: 2012Q1

REPORT INFORMATION
  Report Type: 
  Country: None (occurrence: None)
  Receive Date: 20120117
  Receipt Date: 20120109
  Transmission Date: 20120608
  Serious: Yes (Hospitalization)
  Sender: FDA-Public Use
  Company Number: FR-JNJFOC-20110900156

PATIENT
  Sex: Male

DRUGS (7)
  1. LORAZEPAM [Concomitant]
     Indication: ANXIETY
     Dates: start: 20110726
  2. HALOPERIDOL [Concomitant]
     Indication: SCHIZOPHRENIA
     Dates: start: 20110623, end: 20110726
  3. PALIPERIDONE [Suspect]
     Indication: SCHIZOPHRENIA
     Route: 030
     Dates: start: 20110722, end: 20110729
  4. HALOPERIDOL [Concomitant]
     Dates: start: 20110727, end: 20110728
  5. HALOPERIDOL [Concomitant]
     Dates: start: 20110729, end: 20110811
  6. ATORVASTATIN [Concomitant]
     Indication: HYPERCHOLESTEROLAEMIA
     Dates: start: 20110611
  7. LORAZEPAM [Concomitant]
     Dates: start: 20110717, end: 20110725

REACTIONS (1)
  - PSYCHOTIC DISORDER [None]
